FAERS Safety Report 8591549-9 (Version None)
Quarter: 2012Q3

REPORT INFORMATION
  Report Type: 
  Country: None (occurrence: None)
  Receive Date: 20120814
  Receipt Date: 20120810
  Transmission Date: 20120928
  Serious: No
  Sender: FDA-Public Use
  Company Number: US-PFIZER INC-2012126832

PATIENT
  Sex: Male

DRUGS (3)
  1. EFFEXOR XR [Suspect]
     Indication: DEPRESSION
     Dosage: 75 MG, 1X/DAY
     Route: 048
  2. EFFEXOR XR [Suspect]
     Indication: ANGER
  3. EFFEXOR XR [Suspect]
     Indication: ANXIETY

REACTIONS (3)
  - MALAISE [None]
  - HEADACHE [None]
  - HICCUPS [None]
